FAERS Safety Report 23473387 (Version 1)
Quarter: 2024Q1

REPORT INFORMATION
  Report Type: Spontaneous
  Country: US (occurrence: US)
  Receive Date: 20240203
  Receipt Date: 20240203
  Transmission Date: 20240410
  Serious: No
  Sender: FDA-Public Use
  Company Number: US-Ipsen Biopharmaceuticals, Inc.-2024-01366

PATIENT
  Age: 59 Year
  Sex: Female

DRUGS (6)
  1. DYSPORT [Suspect]
     Active Substance: ABOBOTULINUMTOXINA
     Indication: Skin wrinkling
     Dosage: 15 UNITS GLABELLA, 5 UNITS EACH MEDIAL PORTION OF THE CORRUGATORS AND 5 UNITS IN PROCERUS
     Route: 065
     Dates: start: 20231229, end: 20231229
  2. ESTROGENS [Concomitant]
     Active Substance: ESTROGENS
  3. PANTOPRAZOLE [Concomitant]
     Active Substance: PANTOPRAZOLE
  4. MIRTAZAPINE [Concomitant]
     Active Substance: MIRTAZAPINE
  5. NASACORT [Concomitant]
     Active Substance: TRIAMCINOLONE ACETONIDE
  6. TRAZODONE [Concomitant]
     Active Substance: TRAZODONE HYDROCHLORIDE

REACTIONS (2)
  - Vision blurred [Unknown]
  - Product preparation error [Unknown]

NARRATIVE: CASE EVENT DATE: 20231229
